FAERS Safety Report 5373368-X (Version None)
Quarter: 2007Q2

REPORT INFORMATION
  Report Type: 
  Country: None (occurrence: None)
  Receive Date: 20070628
  Receipt Date: 20070625
  Transmission Date: 20071010
  Serious: Yes (Hospitalization, Other)
  Sender: FDA-Public Use
  Company Number: US-JNJFOC-20060904272

PATIENT
  Sex: Female
  Weight: 76.66 kg

DRUGS (6)
  1. ORTHO EVRA [Suspect]
     Indication: CONTRACEPTION
     Route: 062
  2. ACETAMINOPHEN AND HYDROCODONE BITARTRATE [Concomitant]
  3. PROTONIX [Concomitant]
     Indication: GASTRIC DISORDER
  4. DOXYCYCLINE [Concomitant]
     Indication: LYME DISEASE
     Route: 048
  5. FLONASE [Concomitant]
  6. ADVAIR DISKUS 100/50 [Concomitant]

REACTIONS (4)
  - ARTHRITIS [None]
  - CHOLELITHIASIS [None]
  - DEEP VEIN THROMBOSIS [None]
  - HEPATIC ADENOMA [None]
